FAERS Safety Report 17435590 (Version 2)
Quarter: 2020Q2

REPORT INFORMATION
  Report Type: Spontaneous
  Country: US (occurrence: US)
  Receive Date: 20200219
  Receipt Date: 20200506
  Transmission Date: 20200713
  Serious: No
  Sender: FDA-Public Use
  Company Number: US-VERTEX PHARMACEUTICALS-2020-002998

PATIENT
  Age: 28 Year
  Sex: Female

DRUGS (2)
  1. TRIKAFTA [Suspect]
     Active Substance: ELEXACAFTOR\IVACAFTOR\TEZACAFTOR
     Indication: CYSTIC FIBROSIS
     Dosage: ELEXACAFTOR 100MG/ TEZAACFTOR 50MG/ IVACAFTOR 75MG, IVACAFTOR 150MG, UNK FREQ
     Route: 048
     Dates: start: 20191213
  2. TOBI [Concomitant]
     Active Substance: TOBRAMYCIN

REACTIONS (3)
  - Abdominal discomfort [Recovered/Resolved]
  - Productive cough [Recovered/Resolved]
  - Rhinorrhoea [Recovered/Resolved]

NARRATIVE: CASE EVENT DATE: 201912
